FAERS Safety Report 5730249-7 (Version None)
Quarter: 2008Q2

REPORT INFORMATION
  Report Type: 
  Country: None (occurrence: None)
  Receive Date: 20080502
  Receipt Date: 20080428
  Transmission Date: 20081010
  Serious: Yes (Death)
  Sender: FDA-Public Use
  Company Number: TCI2008A02125

PATIENT
  Age: 82 Year
  Sex: Male
  Weight: 57.5 kg

DRUGS (8)
  1. TAKEPRON INJECTION 30MG (LANSOPRAZOLE)PRIOR USE OF EQUIVALENT PRODUCT: [Suspect]
     Dosage: 30 MG (30 MG, 1 IN 1 D) INTRAVENOUS; 60 MG (30 MG, 2 IN 1 D) INTRAVENOUS
     Route: 042
     Dates: start: 20080321, end: 20080321
  2. TAKEPRON INJECTION 30MG (LANSOPRAZOLE)PRIOR USE OF EQUIVALENT PRODUCT: [Suspect]
     Dosage: 30 MG (30 MG, 1 IN 1 D) INTRAVENOUS; 60 MG (30 MG, 2 IN 1 D) INTRAVENOUS
     Route: 042
     Dates: start: 20080322, end: 20080322
  3. VASOLAN  (VERAPAMIL HYDROCHLORIDE) (TABLETS) [Concomitant]
  4. DIOVAN [Concomitant]
  5. SELBEX (TEPRENONE) (CAPSULES) [Concomitant]
  6. MUCOSTA (REBAMIPIDE) (TABLETS) [Concomitant]
  7. MARZULENE S (MARZULENE S) (GRANULATE) [Concomitant]
  8. MAGLAX     (MAGNESIUM OXIDE) (TABLETS) [Concomitant]

REACTIONS (4)
  - ABDOMINAL PAIN [None]
  - DYSPNOEA [None]
  - LEUKOPENIA [None]
  - PYREXIA [None]
